FAERS Safety Report 8358909-2 (Version None)
Quarter: 2012Q2

REPORT INFORMATION
  Report Type: 
  Country: None (occurrence: None)
  Receive Date: 20120515
  Receipt Date: 20120507
  Transmission Date: 20120825
  Serious: No
  Sender: FDA-Public Use
  Company Number: US-BIOGENIDEC-2012BI007202

PATIENT
  Age: 35 Year
  Sex: Female

DRUGS (3)
  1. TYSABRI [Suspect]
     Route: 042
     Dates: start: 20111021
  2. TYSABRI [Suspect]
     Route: 042
     Dates: start: 20090827, end: 20100108
  3. TYSABRI [Suspect]
     Indication: MULTIPLE SCLEROSIS
     Route: 042
     Dates: start: 20071217, end: 20080612

REACTIONS (5)
  - CYANOSIS [None]
  - GAIT DISTURBANCE [None]
  - PRURITUS [None]
  - MULTIPLE SCLEROSIS [None]
  - FALL [None]
